FAERS Safety Report 16566897 (Version 9)
Quarter: 2020Q4

REPORT INFORMATION
  Report Type: Report from Study
  Country: None (occurrence: JP)
  Receive Date: 20190712
  Receipt Date: 20201105
  Transmission Date: 20210113
  Serious: Yes (Hospitalization)
  Sender: FDA-Public Use
  Company Number: JP-ABBVIE-18S-087-2442944-00

PATIENT
  Age: 51 Year
  Sex: Female

DRUGS (9)
  1. DUODOPA [Suspect]
     Active Substance: CARBIDOPA\LEVODOPA
     Indication: PARKINSON^S DISEASE
     Dosage: MD: 6.3 ML CD: 3.2 ML/HR ED: 1 ML
     Route: 050
     Dates: start: 20170718
  2. CARBIDOPA HYDRATE AND LEVODOPA [Concomitant]
     Indication: PARKINSON^S DISEASE
     Route: 048
  3. LACTOMIN AND AMYLOLYTIC BACILLUS [Concomitant]
     Indication: PROPHYLAXIS
  4. BENFOTIAMINE;PYRIDOXINE HYDROCHLORIDE AND CYANOCOBALAMIN [Concomitant]
     Indication: PRODUCT USED FOR UNKNOWN INDICATION
  5. AMANTADINE HYDROCHLORIDE. [Concomitant]
     Active Substance: AMANTADINE HYDROCHLORIDE
     Indication: PARKINSON^S DISEASE
  6. SUVOREXANT. [Concomitant]
     Active Substance: SUVOREXANT
     Indication: INSOMNIA
     Route: 048
  7. CLONAZEPAM. [Concomitant]
     Active Substance: CLONAZEPAM
     Indication: RAPID EYE MOVEMENT SLEEP BEHAVIOUR DISORDER
     Route: 048
  8. DUODOPA [Suspect]
     Active Substance: CARBIDOPA\LEVODOPA
  9. TRIHEXYPHENIDYL HYDROCHLORIDE. [Concomitant]
     Active Substance: TRIHEXYPHENIDYL HYDROCHLORIDE
     Indication: PARKINSON^S DISEASE

REACTIONS (10)
  - Bezoar [Recovered/Resolved]
  - Arthritis [Unknown]
  - Device alarm issue [Unknown]
  - Drug ineffective [Unknown]
  - Mobility decreased [Unknown]
  - Stoma site erythema [Unknown]
  - Device dislocation [Recovered/Resolved]
  - Medical device site pain [Unknown]
  - Device dislocation [Unknown]
  - Stoma site extravasation [Unknown]

NARRATIVE: CASE EVENT DATE: 20190314
